FAERS Safety Report 9258753 (Version 2)
Quarter: 2013Q2

REPORT INFORMATION
  Report Type: Spontaneous
  Country: US (occurrence: US)
  Receive Date: 20130426
  Receipt Date: 20130506
  Transmission Date: 20140414
  Serious: Yes (Other)
  Sender: FDA-Public Use
  Company Number: US-AMGEN-USASP2013029303

PATIENT
  Age: 65 Year
  Sex: Male

DRUGS (1)
  1. ENBREL [Suspect]
     Indication: BENIGN FAMILIAL PEMPHIGUS
     Dosage: 50 MG, QWK
     Route: 058
     Dates: start: 2009

REACTIONS (5)
  - Meniscus injury [Not Recovered/Not Resolved]
  - Skin lesion [Not Recovered/Not Resolved]
  - Blister [Not Recovered/Not Resolved]
  - Exposure to communicable disease [Not Recovered/Not Resolved]
  - Staphylococcal infection [Not Recovered/Not Resolved]
